FAERS Safety Report 8041174-3 (Version None)
Quarter: 2012Q1

REPORT INFORMATION
  Report Type: 
  Country: None (occurrence: None)
  Receive Date: 20120112
  Receipt Date: 20120102
  Transmission Date: 20120608
  Serious: Yes (Other)
  Sender: FDA-Public Use
  Company Number: FR-BRISTOL-MYERS SQUIBB COMPANY-16329328

PATIENT
  Age: 48 Year
  Sex: Male

DRUGS (3)
  1. ABACAVIR SULFATE AND LAMIVUDINE [Suspect]
     Indication: ANTIRETROVIRAL THERAPY
     Route: 048
     Dates: start: 20100121
  2. REYATAZ [Suspect]
     Indication: ANTIRETROVIRAL THERAPY
     Dosage: 16JUN10,DOSE INCREASED:300MG DAILY.
     Route: 048
     Dates: start: 20100121, end: 20100907
  3. NORVIR [Suspect]
     Indication: ANTIRETROVIRAL THERAPY
     Route: 048
     Dates: start: 20100121

REACTIONS (6)
  - RENAL IMPAIRMENT [None]
  - JAUNDICE [None]
  - CHOLESTASIS [None]
  - NEPHROLITHIASIS [None]
  - HAEMATURIA [None]
  - CYTOLYTIC HEPATITIS [None]
